FAERS Safety Report 11108479 (Version 1)
Quarter: 2015Q2

REPORT INFORMATION
  Report Type: Spontaneous
  Country: US (occurrence: US)
  Receive Date: 20150513
  Receipt Date: 20150513
  Transmission Date: 20150821
  Serious: Yes (Other)
  Sender: FDA-Public Use
  Company Number: US-CIPLA LTD.-2015US03702

PATIENT

DRUGS (3)
  1. PACLITAXEL. [Suspect]
     Active Substance: PACLITAXEL
     Indication: BREAST CANCER METASTATIC
     Dosage: 80 MG/M2 ON DAYS 1, 8, AND 15, THE CYCLE LENGTH WAS 28 DAYS
     Route: 065
  2. PANITUMUMAB [Suspect]
     Active Substance: PANITUMUMAB
     Indication: BREAST CANCER METASTATIC
     Dosage: 6 MG/KG ON DAYS 1 AND 15, THE CYCLE LENGTH WAS 28 DAYS
     Route: 065
  3. CARBOPLATIN. [Suspect]
     Active Substance: CARBOPLATIN
     Indication: BREAST CANCER METASTATIC
     Dosage: AUC OF 2 ON DAYS 1, 8, AND 15, THE CYCLE LENGTH WAS 28 DAYS
     Route: 065

REACTIONS (1)
  - Disease progression [Unknown]
